FAERS Safety Report 16429177 (Version 1)
Quarter: 2019Q2

REPORT INFORMATION
  Report Type: Spontaneous
  Country: SE (occurrence: SE)
  Receive Date: 20190614
  Receipt Date: 20190614
  Transmission Date: 20190711
  Serious: Yes (Other)
  Sender: FDA-Public Use
  Company Number: SE-009507513-1905SWE008052

PATIENT
  Age: 70 Year
  Sex: Female

DRUGS (23)
  1. KALCIPOS D [Concomitant]
     Active Substance: CALCIUM CARBONATE\CHOLECALCIFEROL
     Dosage: 1 DOSAGE FORM (500 MG/800 IU) X1
     Route: 048
     Dates: start: 2019
  2. METOPROLOL SANDOZ (METOPROLOL SUCCINATE) [Concomitant]
     Dosage: 100 MILLIGRAM, QD
     Route: 048
     Dates: start: 2019
  3. OXASCAND [Concomitant]
     Active Substance: OXAZEPAM
     Dosage: 10 MILLIGRAM, QD
     Route: 048
     Dates: start: 2019
  4. STERCULIA [Concomitant]
     Active Substance: HERBALS\KARAYA GUM
     Dosage: 1 SACHET (STRENGTH UNSPECIFIED)
     Route: 048
     Dates: start: 2019
  5. PRONAXEN [Concomitant]
     Active Substance: NAPROXEN
     Dosage: 250 MILLIGRAM, BID
     Route: 048
     Dates: start: 2019
  6. OXYNORM [Concomitant]
     Active Substance: OXYCODONE HYDROCHLORIDE
     Dosage: 20 MILLIGRAM X2-4
     Route: 048
     Dates: start: 2019
  7. LASIX [Concomitant]
     Active Substance: FUROSEMIDE
     Dosage: 60 MILLIGRAM, QD
     Route: 048
     Dates: start: 2019
  8. KEYTRUDA [Suspect]
     Active Substance: PEMBROLIZUMAB
     Indication: LUNG CANCER METASTATIC
     Dosage: 200 MILLIGRAM, ONCE
     Route: 042
     Dates: start: 20190514, end: 20190514
  9. DIURETIC (UNSPECIFIED) [Concomitant]
     Active Substance: UNSPECIFIED INGREDIENT
  10. ALLOPURINOL. [Concomitant]
     Active Substance: ALLOPURINOL
     Dosage: 100 MILLIGRAM, BID
     Route: 048
     Dates: start: 2019
  11. MORFIN MEDA [Concomitant]
     Active Substance: MORPHINE SULFATE
     Dosage: 10 MG/ML DILUTED IN NATRIUMKLORID FRESENIUS KABI (SODIUM CHLORIDE), 1 ML+ 9 ML. 15-25 ML (1 MG/ML)
     Route: 042
     Dates: start: 2019
  12. ANALGESIC (UNSPECIFIED) [Concomitant]
     Active Substance: UNSPECIFIED INGREDIENT
  13. TROMBYL [Concomitant]
     Active Substance: ASPIRIN
     Dosage: 75 MILLIGRAM, QD
     Route: 048
     Dates: start: 2019
  14. STILNOCT [Concomitant]
     Active Substance: ZOLPIDEM TARTRATE
     Dosage: 10 MILLIGRAM, QD
     Route: 048
     Dates: start: 2019
  15. MOVICOL [Concomitant]
     Active Substance: POLYETHYLENE GLYCOL 3350\POTASSIUM CHLORIDE\SODIUM BICARBONATE\SODIUM CHLORIDE
     Dosage: 1-2 SACHETS (STRENGTH UNSPECIFIED)
     Route: 048
     Dates: start: 2019
  16. SODIUM CHLORIDE. [Concomitant]
     Active Substance: SODIUM CHLORIDE
     Dosage: UNK
     Dates: start: 2019
  17. MORPHINE [Concomitant]
     Active Substance: MORPHINE
     Dosage: 3 MILLILITER (10 MG/ML)
     Route: 058
     Dates: start: 2019
  18. ALVEDON [Concomitant]
     Active Substance: ACETAMINOPHEN
     Dosage: 500 MILLIGRAM, BID
     Route: 048
     Dates: start: 2019
  19. OMEPRAZOLE. [Concomitant]
     Active Substance: OMEPRAZOLE
     Dosage: 20 MILLIGRAM, QD
     Route: 048
     Dates: start: 2019
  20. FURIX (FUROSEMIDE) [Concomitant]
     Active Substance: FUROSEMIDE
     Dosage: 30 MILLIGRAM, QD
     Route: 048
     Dates: start: 2019
  21. RAMIPRIL HEXAL [Concomitant]
     Active Substance: RAMIPRIL
     Dosage: 10 MILLIGRAM, QD
     Route: 048
     Dates: start: 2019
  22. FLOXACILLIN SODIUM [Concomitant]
     Active Substance: FLUCLOXACILLIN SODIUM ANHYDROUS
     Dosage: 500 MILLIGRAM, BID
     Route: 048
     Dates: start: 2019
  23. CETIRIZINE SANDOZ [Concomitant]
     Active Substance: CETIRIZINE HYDROCHLORIDE
     Dosage: 10 MILLIGRAM, QD
     Route: 048
     Dates: start: 2019

REACTIONS (5)
  - Chills [Unknown]
  - Nausea [Recovered/Resolved]
  - Diarrhoea [Recovered/Resolved]
  - Immune-mediated adverse reaction [Recovered/Resolved]
  - Cold sweat [Recovered/Resolved]

NARRATIVE: CASE EVENT DATE: 20190515
